FAERS Safety Report 18559991 (Version 13)
Quarter: 2022Q1

REPORT INFORMATION
  Report Type: Other
  Country: CA (occurrence: None)
  Receive Date: 20201130
  Receipt Date: 20220308
  Transmission Date: 20220424
  Serious: Yes (Hospitalization, Other)
  Sender: FDA-Public Use
  Company Number: CA-ROCHE-2512096

PATIENT
  Age: 35 Year
  Sex: Female
  Weight: 99.880 kg

DRUGS (19)
  1. OCREVUS [Suspect]
     Active Substance: OCRELIZUMAB
     Indication: Relapsing-remitting multiple sclerosis
     Dosage: THEN 600 MG EVERY 6 MONTHS
     Route: 042
     Dates: start: 20191223
  2. OCREVUS [Suspect]
     Active Substance: OCRELIZUMAB
     Dosage: INFUSION NUMBER 3
     Route: 042
     Dates: start: 20200810
  3. OCREVUS [Suspect]
     Active Substance: OCRELIZUMAB
     Route: 042
  4. OCREVUS [Suspect]
     Active Substance: OCRELIZUMAB
     Route: 042
     Dates: start: 20210301
  5. OCREVUS [Suspect]
     Active Substance: OCRELIZUMAB
     Route: 042
     Dates: start: 20211014
  6. ACETAMINOPHEN [Concomitant]
     Active Substance: ACETAMINOPHEN
     Indication: Premedication
     Route: 048
  7. BENADRYL [Concomitant]
     Active Substance: DIPHENHYDRAMINE HYDROCHLORIDE
     Indication: Premedication
     Route: 048
  8. BENADRYL [Concomitant]
     Active Substance: DIPHENHYDRAMINE HYDROCHLORIDE
     Route: 048
  9. METHYLPREDNISOLONE [Concomitant]
     Active Substance: METHYLPREDNISOLONE
     Indication: Premedication
     Route: 042
  10. SODIUM CHLORIDE [Concomitant]
     Active Substance: SODIUM CHLORIDE
     Indication: Premedication
  11. SOLU-MEDROL [Concomitant]
     Active Substance: METHYLPREDNISOLONE SODIUM SUCCINATE
  12. SYNTHROID [Concomitant]
     Active Substance: LEVOTHYROXINE SODIUM
     Indication: Product used for unknown indication
  13. VITAMIN C [Concomitant]
     Active Substance: ASCORBIC ACID
  14. IRON [Concomitant]
     Active Substance: IRON
  15. CALCIUM [Concomitant]
     Active Substance: CALCIUM
  16. FLOVENT [Concomitant]
     Active Substance: FLUTICASONE PROPIONATE
     Dosage: WHEN NEEDED
  17. ALBUTEROL [Concomitant]
     Active Substance: ALBUTEROL
     Dosage: WHEN NEEDED
  18. LION^S MANE [Concomitant]
  19. OMEGA 3 [Concomitant]
     Active Substance: CAPSAICIN

REACTIONS (37)
  - COVID-19 [Not Recovered/Not Resolved]
  - Infusion related reaction [Recovered/Resolved]
  - Anxiety [Unknown]
  - Arthralgia [Not Recovered/Not Resolved]
  - Hypoaesthesia oral [Recovered/Resolved]
  - Skin reaction [Recovering/Resolving]
  - Electric shock sensation [Unknown]
  - Pain [Recovered/Resolved]
  - Nasopharyngitis [Not Recovered/Not Resolved]
  - Back pain [Unknown]
  - Blood iron increased [Unknown]
  - Hyperhidrosis [Recovered/Resolved]
  - Muscle spasms [Recovered/Resolved]
  - Gait disturbance [Not Recovered/Not Resolved]
  - Dyschromatopsia [Not Recovered/Not Resolved]
  - Pharyngeal paraesthesia [Not Recovered/Not Resolved]
  - Throat tightness [Not Recovered/Not Resolved]
  - Dyspnoea [Not Recovered/Not Resolved]
  - Pain in extremity [Recovering/Resolving]
  - Chest discomfort [Recovered/Resolved]
  - Visual impairment [Not Recovered/Not Resolved]
  - Ear pain [Recovered/Resolved]
  - Headache [Recovered/Resolved]
  - Asthma [Unknown]
  - Eye infection [Recovering/Resolving]
  - Chills [Recovered/Resolved]
  - Nausea [Not Recovered/Not Resolved]
  - Cough [Not Recovered/Not Resolved]
  - Pyrexia [Recovered/Resolved]
  - Infection [Unknown]
  - Nodule [Not Recovered/Not Resolved]
  - Hypokinesia [Not Recovered/Not Resolved]
  - Onychomycosis [Not Recovered/Not Resolved]
  - Dizziness [Not Recovered/Not Resolved]
  - Conjunctivitis [Recovered/Resolved]
  - Memory impairment [Not Recovered/Not Resolved]
  - Tooth disorder [Unknown]

NARRATIVE: CASE EVENT DATE: 20191223
